FAERS Safety Report 10622757 (Version 1)
Quarter: 2014Q4

REPORT INFORMATION
  Report Type: Spontaneous
  Country: US (occurrence: None)
  Receive Date: 20141202
  Receipt Date: 20141202
  Transmission Date: 20150529
  Serious: Yes (Disabling)
  Sender: FDA-Public Use
  Company Number: None

PATIENT
  Age: 40 Year
  Sex: Female
  Weight: 74.84 kg

DRUGS (1)
  1. HUMALOG PEN [Suspect]
     Active Substance: INSULIN LISPRO
     Indication: DIABETES MELLITUS
     Dosage: GIVEN INTO/UNDER THE SKIN

REACTIONS (3)
  - Hypoglycaemia [None]
  - Device issue [None]
  - Loss of consciousness [None]

NARRATIVE: CASE EVENT DATE: 20141125
